FAERS Safety Report 16372232 (Version 2)
Quarter: 2019Q4

REPORT INFORMATION
  Report Type: Report from Study
  Country: DE (occurrence: DE)
  Receive Date: 20190530
  Receipt Date: 20191209
  Transmission Date: 20200122
  Serious: Yes (Hospitalization, Other)
  Sender: FDA-Public Use
  Company Number: DE-JNJFOC-20190525119

PATIENT
  Age: 50 Year
  Sex: Female
  Weight: 122 kg

DRUGS (1)
  1. STELARA [Suspect]
     Active Substance: USTEKINUMAB
     Indication: PSORIASIS
     Route: 058
     Dates: start: 20050516, end: 20181123

REACTIONS (6)
  - Renal failure [Recovered/Resolved]
  - Hyperglycaemia [Unknown]
  - Gastroenteritis norovirus [Not Recovered/Not Resolved]
  - Burns third degree [Recovered/Resolved]
  - Delirium [Unknown]
  - Anaemia [Unknown]

NARRATIVE: CASE EVENT DATE: 20190203
